FAERS Safety Report 6304554-X (Version None)
Quarter: 2009Q3

REPORT INFORMATION
  Report Type: 
  Country: None (occurrence: None)
  Receive Date: 20090806
  Receipt Date: 20090731
  Transmission Date: 20100115
  Serious: Yes (Death)
  Sender: FDA-Public Use
  Company Number: OMPQ-NO-0908S-0698

PATIENT
  Age: 76 Year
  Sex: Male

DRUGS (1)
  1. OMNIPAQUE 300 [Suspect]
     Indication: DRUG USE FOR UNKNOWN INDICATION
     Dosage: 100 ML; I.V.
     Route: 042
     Dates: start: 20090729, end: 20090729

REACTIONS (5)
  - CARDIO-RESPIRATORY ARREST [None]
  - DISCOMFORT [None]
  - DYSPNOEA [None]
  - INFUSION RELATED REACTION [None]
  - RESTLESSNESS [None]
